FAERS Safety Report 15607235 (Version 1)
Quarter: 2018Q4

REPORT INFORMATION
  Report Type: Spontaneous
  Country: US (occurrence: US)
  Receive Date: 20181112
  Receipt Date: 20181112
  Transmission Date: 20190205
  Serious: Yes (Life-Threatening)
  Sender: FDA-Public Use
  Company Number: None

PATIENT
  Age: 58 Year
  Sex: Male
  Weight: 115 kg

DRUGS (1)
  1. ADENOSINE. [Suspect]
     Active Substance: ADENOSINE
     Indication: FRACTIONAL FLOW RESERVE
     Dates: start: 20180809, end: 20180809

REACTIONS (3)
  - Apnoea [None]
  - Bronchospasm [None]
  - Hypoxia [None]

NARRATIVE: CASE EVENT DATE: 20180809
